FAERS Safety Report 5415081-6 (Version None)
Quarter: 2007Q3

REPORT INFORMATION
  Report Type: 
  Country: None (occurrence: None)
  Receive Date: 20070814
  Receipt Date: 20070814
  Transmission Date: 20080115
  Serious: Yes (Other)
  Sender: FDA-Public Use
  Company Number: None

PATIENT
  Sex: Female
  Weight: 46.7205 kg

DRUGS (2)
  1. LAMICTAL [Suspect]
     Indication: MAJOR DEPRESSION
     Dosage: 25 MG 1 TAB DAILY PO
     Route: 048
     Dates: start: 20070724, end: 20070806
  2. LAMICTAL [Suspect]
     Indication: POST-TRAUMATIC STRESS DISORDER
     Dosage: 25 MG 1 TAB DAILY PO
     Route: 048
     Dates: start: 20070724, end: 20070806

REACTIONS (2)
  - BLISTER [None]
  - ORAL MUCOSAL BLISTERING [None]
